FAERS Safety Report 4777711-1 (Version None)
Quarter: 2005Q3

REPORT INFORMATION
  Report Type: 
  Country: None (occurrence: None)
  Receive Date: 20050923
  Receipt Date: 20050916
  Transmission Date: 20060218
  Serious: Yes (Other)
  Sender: FDA-Public Use
  Company Number: ES-MERCK-0509ESP00023

PATIENT

DRUGS (1)
  1. VIOXX [Suspect]
     Route: 065

REACTIONS (1)
  - CEREBRAL INFARCTION [None]
